FAERS Safety Report 17038366 (Version 1)
Quarter: 2019Q4

REPORT INFORMATION
  Report Type: Spontaneous
  Country: PT (occurrence: PT)
  Receive Date: 20191115
  Receipt Date: 20191115
  Transmission Date: 20200122
  Serious: Yes (Hospitalization, Other)
  Sender: FDA-Public Use
  Company Number: PT-PFIZER INC-2019488367

PATIENT
  Age: 75 Year
  Sex: Male

DRUGS (2)
  1. ANIDULAFUNGIN [Suspect]
     Active Substance: ANIDULAFUNGIN
     Indication: INTERVERTEBRAL DISCITIS
     Dosage: UNK
  2. ANIDULAFUNGIN [Suspect]
     Active Substance: ANIDULAFUNGIN
     Indication: CANDIDA INFECTION

REACTIONS (1)
  - Drug reaction with eosinophilia and systemic symptoms [Unknown]
